FAERS Safety Report 14616800 (Version 2)
Quarter: 2018Q2

REPORT INFORMATION
  Report Type: Spontaneous
  Country: JP (occurrence: JP)
  Receive Date: 20180309
  Receipt Date: 20180621
  Transmission Date: 20180711
  Serious: Yes (Hospitalization, Other)
  Sender: FDA-Public Use
  Company Number: JP-009507513-1705JPN003002J

PATIENT
  Age: 78 Year
  Sex: Male
  Weight: 74 kg

DRUGS (4)
  1. ACTOS [Concomitant]
     Active Substance: PIOGLITAZONE HYDROCHLORIDE
     Dosage: 15 MG, QD
     Route: 048
  2. KEYTRUDA [Suspect]
     Active Substance: PEMBROLIZUMAB
     Indication: LUNG ADENOCARCINOMA
     Dosage: 200 MG, Q3W
     Route: 041
     Dates: start: 20170419, end: 20170712
  3. LIPITOR [Concomitant]
     Active Substance: ATORVASTATIN CALCIUM
     Dosage: 10 MG, QD
     Route: 048
  4. MICARDIS [Concomitant]
     Active Substance: TELMISARTAN
     Dosage: 40 MG, QD
     Route: 048

REACTIONS (5)
  - Pyrexia [Recovered/Resolved]
  - C-reactive protein increased [Unknown]
  - Interstitial lung disease [Not Recovered/Not Resolved]
  - Imaging procedure abnormal [Recovered/Resolved]
  - Tumour invasion [Recovered/Resolved]

NARRATIVE: CASE EVENT DATE: 201705
